FAERS Safety Report 4364839-3 (Version None)
Quarter: 2004Q2

REPORT INFORMATION
  Report Type: 
  Country: None (occurrence: None)
  Receive Date: 20040526
  Receipt Date: 20040329
  Transmission Date: 20050107
  Serious: No
  Sender: FDA-Public Use
  Company Number: US-GLAXOSMITHKLINE-A0504925A

PATIENT
  Age: 27 Year
  Sex: Female

DRUGS (3)
  1. LOTRONEX [Suspect]
     Indication: IRRITABLE BOWEL SYNDROME
     Dosage: 2MG PER DAY
     Route: 048
     Dates: start: 20030101, end: 20030101
  2. CELEXA [Concomitant]
  3. PEPCID [Concomitant]

REACTIONS (4)
  - CONSTIPATION [None]
  - DIARRHOEA [None]
  - FAECALOMA [None]
  - RECTAL HAEMORRHAGE [None]
